FAERS Safety Report 5331700-7 (Version None)
Quarter: 2007Q2

REPORT INFORMATION
  Report Type: 
  Country: None (occurrence: None)
  Receive Date: 20070516
  Receipt Date: 20070508
  Transmission Date: 20071010
  Serious: Yes (Other)
  Sender: FDA-Public Use
  Company Number: VEREGEN-1

PATIENT
  Age: 44 Year
  Sex: Female

DRUGS (2)
  1. VEREGEN GREEN TEA EXTRACT (CAMELLA SINENSIS) [Suspect]
     Indication: WEIGHT CONTROL
     Dosage: 729 MG/DAY ORAL
     Route: 048
     Dates: start: 20050401, end: 20051001
  2. PROGESTERONE INJECTIONS [Concomitant]

REACTIONS (8)
  - CHOLESTASIS [None]
  - COAGULOPATHY [None]
  - ENCEPHALOPATHY [None]
  - GENERAL PHYSICAL HEALTH DETERIORATION [None]
  - HEPATIC FAILURE [None]
  - HEPATIC NECROSIS [None]
  - LIVER TRANSPLANT [None]
  - MUSCULAR WEAKNESS [None]
